FAERS Safety Report 15413707 (Version 9)
Quarter: 2019Q3

REPORT INFORMATION
  Report Type: Report from Study
  Country: CA (occurrence: CA)
  Receive Date: 20180921
  Receipt Date: 20190712
  Transmission Date: 20191004
  Serious: Yes (Other)
  Sender: FDA-Public Use
  Company Number: PHHY2015CA033572

PATIENT
  Age: 66 Year
  Sex: Male

DRUGS (5)
  1. SANDOSTATIN LAR DEPOT [Suspect]
     Active Substance: OCTREOTIDE ACETATE
     Dosage: 60 MG, QMO
     Route: 030
     Dates: start: 20190418
  2. SANDOSTATIN [Suspect]
     Active Substance: OCTREOTIDE ACETATE
     Indication: NEUROENDOCRINE CARCINOMA
     Dosage: 100 UG, ONCE/SINGLE
     Route: 058
     Dates: start: 20140818, end: 20140818
  3. METOPROLOL. [Suspect]
     Active Substance: METOPROLOL
     Indication: PRODUCT USED FOR UNKNOWN INDICATION
     Dosage: 50 MG, BID
     Route: 065
  4. SANDOSTATIN LAR DEPOT [Suspect]
     Active Substance: OCTREOTIDE ACETATE
     Indication: NEUROENDOCRINE CARCINOMA
     Dosage: 60 MG, QMO
     Route: 030
     Dates: start: 20140827
  5. SANDOSTATIN LAR DEPOT [Suspect]
     Active Substance: OCTREOTIDE ACETATE
     Dosage: 60 MG, QMO
     Route: 030
     Dates: start: 20190225

REACTIONS (15)
  - Blood pressure increased [Unknown]
  - Needle issue [Unknown]
  - Somnolence [Unknown]
  - Decreased appetite [Unknown]
  - Dizziness [Unknown]
  - Weight decreased [Recovering/Resolving]
  - Heart rate irregular [Unknown]
  - Diarrhoea [Recovered/Resolved]
  - Chest discomfort [Unknown]
  - Fatigue [Unknown]
  - Asthenia [Unknown]
  - Hypertension [Unknown]
  - Injection site mass [Recovered/Resolved]
  - Palpitations [Unknown]
  - Diarrhoea [Unknown]

NARRATIVE: CASE EVENT DATE: 201503
